FAERS Safety Report 8837496 (Version 1)
Quarter: 2012Q4

REPORT INFORMATION
  Report Type: 
  Country: US (occurrence: US)
  Receive Date: 20121012
  Receipt Date: 20121012
  Transmission Date: 20130627
  Serious: No
  Sender: FDA-Public Use
  Company Number: US-BAYER-2012-106856

PATIENT
  Age: 77 Year
  Sex: Male

DRUGS (9)
  1. LEVITRA [Suspect]
     Indication: ERECTILE DYSFUNCTION
     Dosage: 20 mg, 2 weeks
  2. STAXYN (FDT/ODT) [Suspect]
  3. SIMVASTATIN [Concomitant]
  4. ENALAPRIL [Concomitant]
  5. TAMSULOSIN [Concomitant]
  6. ASPIRIN [Concomitant]
  7. FISH OIL [Concomitant]
  8. MULTIVITAMIN [Concomitant]
  9. RANITIDINE [Concomitant]

REACTIONS (2)
  - Drug ineffective [None]
  - Drug ineffective [None]
